FAERS Safety Report 5038632-2 (Version None)
Quarter: 2006Q2

REPORT INFORMATION
  Report Type: 
  Country: None (occurrence: None)
  Receive Date: 20060628
  Receipt Date: 20060628
  Transmission Date: 20061013
  Serious: Yes (Death, Hospitalization)
  Sender: FDA-Public Use
  Company Number: None

PATIENT
  Age: 55 Year
  Sex: Male
  Weight: 70 kg

DRUGS (2)
  1. COUMADIN [Suspect]
     Indication: DEEP VEIN THROMBOSIS
     Dosage: 5 MG DAILY ORALLY
     Route: 048
     Dates: start: 20051210
  2. COUMADIN [Suspect]
     Indication: PULMONARY EMBOLISM
     Dosage: 5 MG DAILY ORALLY
     Route: 048
     Dates: start: 20051210

REACTIONS (12)
  - ARTERIAL BYPASS OPERATION [None]
  - CARDIOGENIC SHOCK [None]
  - HAEMOGLOBIN DECREASED [None]
  - HYPOTENSION [None]
  - INTERNATIONAL NORMALISED RATIO INCREASED [None]
  - PAIN IN EXTREMITY [None]
  - RESPIRATORY DISTRESS [None]
  - SEPTIC SHOCK [None]
  - SINUS TACHYCARDIA [None]
  - SKIN DISCOLOURATION [None]
  - TACHYCARDIA [None]
  - VENTRICULAR TACHYCARDIA [None]
